FAERS Safety Report 5776939-1 (Version None)
Quarter: 2008Q2

REPORT INFORMATION
  Report Type: 
  Country: None (occurrence: None)
  Receive Date: 20080618
  Receipt Date: 20080606
  Transmission Date: 20081010
  Serious: Yes (Death, Hospitalization)
  Sender: FDA-Public Use
  Company Number: B0524940A

PATIENT
  Age: 66 Year
  Sex: Female

DRUGS (11)
  1. CARVEDILOL [Suspect]
     Dosage: 2.5MG PER DAY
     Route: 048
  2. POTASSIUM CHLORIDE [Suspect]
     Dosage: 220MEQ PER DAY
     Route: 042
  3. VERAPAMIL HYDROCHLORIDE [Suspect]
     Route: 048
  4. FUROSEMIDE [Suspect]
     Route: 042
  5. HEPARIN [Suspect]
     Route: 065
  6. INSULIN [Concomitant]
     Route: 042
  7. METHYLPREDNISOLONE [Concomitant]
     Route: 065
  8. DOPAMINE HYDROCHLORIDE [Concomitant]
     Dosage: 3.7UGKM CONTINUOUS
     Route: 042
  9. NITROGLYCERIN [Concomitant]
     Dosage: .5UGKM CONTINUOUS
     Route: 065
  10. DOBUTAMINE HYDROCHLORIDE [Concomitant]
     Route: 065
  11. SODIUM BICARBONATE [Concomitant]
     Route: 065

REACTIONS (9)
  - BLOOD CREATININE INCREASED [None]
  - BLOOD PRESSURE DECREASED [None]
  - BLOOD UREA INCREASED [None]
  - CARDIAC FAILURE [None]
  - COLD SWEAT [None]
  - DEPRESSED LEVEL OF CONSCIOUSNESS [None]
  - LACTIC ACIDOSIS [None]
  - OLIGURIA [None]
  - ORTHOPNOEA [None]
